FAERS Safety Report 8073656-2 (Version None)
Quarter: 2012Q1

REPORT INFORMATION
  Report Type: 
  Country: None (occurrence: None)
  Receive Date: 20120126
  Receipt Date: 20120119
  Transmission Date: 20120608
  Serious: Yes (Death, Hospitalization)
  Sender: FDA-Public Use
  Company Number: ID-ROCHE-1022902

PATIENT
  Age: 5 Year
  Sex: Female

DRUGS (2)
  1. METHYLPREDNISOLONE [Concomitant]
  2. TAMIFLU [Suspect]
     Indication: PRODUCT USED FOR UNKNOWN INDICATION
     Dates: start: 20111007

REACTIONS (2)
  - PNEUMONIA [None]
  - INFLUENZA [None]
